FAERS Safety Report 9878903 (Version 2)
Quarter: 2014Q1

REPORT INFORMATION
  Report Type: Spontaneous
  Country: US (occurrence: US)
  Receive Date: 20140206
  Receipt Date: 20140206
  Transmission Date: 20141002
  Serious: No
  Sender: FDA-Public Use
  Company Number: US-ALLERGAN-1315347US

PATIENT
  Age: 56 Year
  Sex: Male

DRUGS (1)
  1. BOTOX COSMETIC [Suspect]
     Indication: SKIN WRINKLING
     Dosage: 6 UNITS, SINGLE
     Route: 030
     Dates: start: 20130916, end: 20130916

REACTIONS (3)
  - Wrong technique in drug usage process [Unknown]
  - Poor quality drug administered [Unknown]
  - Drug ineffective [Unknown]
